FAERS Safety Report 8967792 (Version 1)
Quarter: 2012Q4

REPORT INFORMATION
  Report Type: 
  Country: US (occurrence: US)
  Receive Date: 20121217
  Receipt Date: 20121217
  Transmission Date: 20130627
  Serious: Yes (Other)
  Sender: FDA-Public Use
  Company Number: US-ASTRAZENECA-2012SE92151

PATIENT
  Age: 55 Year
  Sex: Female
  Weight: 113.4 kg

DRUGS (18)
  1. LISINOPRIL [Suspect]
     Route: 048
     Dates: start: 1997
  2. SYMBICORT [Suspect]
     Indication: CHRONIC OBSTRUCTIVE PULMONARY DISEASE
     Dosage: 160/4.5ug two puffs two times daily
     Route: 055
     Dates: start: 201211
  3. POTASSIUM [Concomitant]
     Indication: HYPOKALAEMIA
     Dosage: 10 meg BID
     Route: 048
     Dates: start: 1997
  4. GABAPENTIN [Concomitant]
     Indication: NEUROPATHY PERIPHERAL
     Route: 048
     Dates: start: 1997
  5. GEMFIBROZOLE [Concomitant]
     Indication: HYPERCHOLESTEROLAEMIA
     Route: 048
     Dates: start: 1997
  6. CILTIAZEN [Concomitant]
     Indication: DYSPEPSIA
     Route: 048
     Dates: start: 1997
  7. XIFAXAN [Concomitant]
     Indication: AMNESIA
     Route: 048
     Dates: start: 2011
  8. DEXILANT [Concomitant]
     Route: 048
     Dates: start: 2007
  9. LEVOTHYROXINE [Concomitant]
     Indication: HYPOTHYROIDISM
     Route: 048
     Dates: start: 1997
  10. METFORMIN [Concomitant]
     Indication: DIABETES MELLITUS
     Route: 048
     Dates: start: 1997
  11. HYDROXYZ PAM PAT [Concomitant]
     Indication: PRURITUS
     Route: 048
     Dates: start: 1997
  12. PROMETHAZINE [Concomitant]
     Indication: COUGH
     Dosage: as needed
     Route: 048
  13. LACULOSE [Concomitant]
     Indication: LIVER DISORDER
     Dosage: 60 cc QID
     Route: 048
  14. SPIRIVA [Concomitant]
  15. ALIEVE [Concomitant]
     Dosage: as needed
  16. VITAMIN D [Concomitant]
  17. GLIBURIDE [Concomitant]
     Route: 048
     Dates: start: 1997
  18. DILTALAZEM [Concomitant]
     Route: 048
     Dates: start: 201205

REACTIONS (8)
  - Cardiac septal defect [Unknown]
  - Muscle spasms [Unknown]
  - Nervousness [Unknown]
  - Urinary tract infection [Unknown]
  - Tremor [Unknown]
  - Liver disorder [Unknown]
  - Amnesia [Unknown]
  - Sinusitis [Unknown]
